FAERS Safety Report 13938709 (Version 1)
Quarter: 2017Q3

REPORT INFORMATION
  Report Type: Other
  Country: DE (occurrence: DE)
  Receive Date: 20170906
  Receipt Date: 20170906
  Transmission Date: 20171127
  Serious: Yes (Congenital Anomaly, Other)
  Sender: FDA-Public Use
  Company Number: DE-MACLEODS PHARMACEUTICALS US LTD-MAC2017005800

PATIENT

DRUGS (4)
  1. BALDRIAN [Concomitant]
     Indication: ANXIETY DISORDER
     Dosage: 500 MG, QD (IF REQUIRED)
     Route: 064
  2. FOLS?URE [Concomitant]
     Indication: PROPHYLAXIS OF NEURAL TUBE DEFECT
     Dosage: UNK
     Route: 064
  3. ESCITALOPRAM [Suspect]
     Active Substance: ESCITALOPRAM OXALATE
     Indication: ANXIETY DISORDER
     Dosage: 20 MG, QD, (0. - 36.1. GESTATIONAL WEEK)
     Route: 064
     Dates: start: 20160306, end: 20161114
  4. PROTAPHANE [Concomitant]
     Active Substance: INSULIN HUMAN
     Indication: GESTATIONAL DIABETES
     Dosage: 22 IU, QD (22 [I.E./D ]) (2 TRIMESTER, 14. - 36.1. GESTATIONAL WEEK)
     Route: 064

REACTIONS (8)
  - Atrial septal defect [Not Recovered/Not Resolved]
  - Cryptorchism [Unknown]
  - Congenital tricuspid valve incompetence [Recovered/Resolved]
  - Congenital pulmonary hypertension [Recovered/Resolved]
  - Selective eating disorder [Recovered/Resolved]
  - Foetal exposure during pregnancy [Unknown]
  - Pulmonary artery stenosis congenital [Recovered/Resolved]
  - Neonatal respiratory distress syndrome [Recovered/Resolved]

NARRATIVE: CASE EVENT DATE: 20161114
